FAERS Safety Report 7511509-6 (Version None)
Quarter: 2011Q2

REPORT INFORMATION
  Report Type: 
  Country: None (occurrence: None)
  Receive Date: 20110531
  Receipt Date: 20100611
  Transmission Date: 20111010
  Serious: No
  Sender: FDA-Public Use
  Company Number: US-PFIZER INC-2010073809

PATIENT
  Age: 49 Year
  Sex: Male

DRUGS (1)
  1. COLESTIPOL HYDROCHLORIDE [Suspect]
     Dosage: 1 MG, UNK

REACTIONS (1)
  - DYSPHAGIA [None]
